FAERS Safety Report 5488550-0 (Version None)
Quarter: 2007Q4

REPORT INFORMATION
  Report Type: 
  Country: None (occurrence: None)
  Receive Date: 20071017
  Receipt Date: 20071012
  Transmission Date: 20080405
  Serious: Yes (Other)
  Sender: FDA-Public Use
  Company Number: CA-ASTRAZENECA-2007UW23902

PATIENT
  Age: 10 Year
  Sex: Female

DRUGS (3)
  1. SEROQUEL [Suspect]
     Route: 048
  2. CLONIDINE [Concomitant]
  3. RISPERIDONE [Concomitant]

REACTIONS (6)
  - CONDITION AGGRAVATED [None]
  - COORDINATION ABNORMAL [None]
  - DIARRHOEA [None]
  - PYREXIA [None]
  - RETCHING [None]
  - VOMITING [None]
